FAERS Safety Report 9228651 (Version 1)
Quarter: 2013Q2

REPORT INFORMATION
  Report Type: Spontaneous
  Country: FR (occurrence: FR)
  Receive Date: 20130412
  Receipt Date: 20130412
  Transmission Date: 20140414
  Serious: Yes (Other)
  Sender: FDA-Public Use
  Company Number: FR-BRISTOL-MYERS SQUIBB COMPANY-18752345

PATIENT
  Age: 26 Year
  Sex: Female

DRUGS (2)
  1. SUSTIVA CAPS 200 MG [Suspect]
     Indication: HIV INFECTION CDC CATEGORY A2
     Dosage: LAST DOSE: 08-JAN-2013
     Dates: start: 20120104
  2. TRUVADA [Suspect]
     Indication: HIV INFECTION CDC CATEGORY A2
     Dosage: TRUVADA 200 MG/ 245 MG FILM-COATED TABLET
     Route: 048
     Dates: start: 20120104

REACTIONS (6)
  - Sleep disorder [Recovering/Resolving]
  - Morose [Recovering/Resolving]
  - Depression [Recovering/Resolving]
  - Decreased appetite [Recovering/Resolving]
  - Dizziness [Recovering/Resolving]
  - Nervousness [Recovering/Resolving]
